FAERS Safety Report 4320038-2 (Version None)
Quarter: 2004Q1

REPORT INFORMATION
  Report Type: 
  Country: None (occurrence: None)
  Receive Date: 20040315
  Receipt Date: 20031230
  Transmission Date: 20041129
  Serious: No
  Sender: FDA-Public Use
  Company Number: 2004192566US

PATIENT
  Age: 76 Year
  Sex: Male

DRUGS (6)
  1. BEXTRA [Suspect]
     Indication: LOCALISED OSTEOARTHRITIS
     Dosage: 20 MG; 10 MG
     Dates: start: 20031201
  2. BEXTRA [Suspect]
     Indication: LOCALISED OSTEOARTHRITIS
     Dosage: 20 MG; 10 MG
     Dates: start: 20031201
  3. LIPITOR [Concomitant]
  4. NEXIUM [Concomitant]
  5. PREDNISONE [Concomitant]
  6. COUMADIN [Concomitant]

REACTIONS (2)
  - HEADACHE [None]
  - PROTHROMBIN TIME PROLONGED [None]
